FAERS Safety Report 4771739-3 (Version None)
Quarter: 2005Q3

REPORT INFORMATION
  Report Type: 
  Country: None (occurrence: None)
  Receive Date: 20050916
  Receipt Date: 20050913
  Transmission Date: 20060218
  Serious: Yes (Life-Threatening)
  Sender: FDA-Public Use
  Company Number: PHBS2005ES13488

PATIENT
  Age: 35 Year
  Sex: Female

DRUGS (7)
  1. TACROLIMUS (NGX) [Suspect]
     Indication: LIVER TRANSPLANT
     Dates: end: 20050721
  2. NIFEDIPINE [Concomitant]
     Indication: ESSENTIAL HYPERTENSION
  3. MAGNESIUM [Concomitant]
     Indication: MAGNESIUM METABOLISM DISORDER
     Dosage: UNK, UNK
     Dates: start: 20041001
  4. METHYLPREDNISOLONE [Concomitant]
  5. URDECOXOLIC AXID [Concomitant]
     Indication: GALLBLADDER DISORDER
     Dosage: UNK, UNK
     Dates: start: 20050601
  6. MYCOPHENOLATE SODIUM [Concomitant]
     Indication: LIVER TRANSPLANT
  7. DIGARIL [Suspect]
     Indication: LIPID METABOLISM DISORDER
     Dosage: 40 MG/DAY
     Route: 048
     Dates: start: 20041201, end: 20050718

REACTIONS (2)
  - RENAL FAILURE ACUTE [None]
  - RHABDOMYOLYSIS [None]
